FAERS Safety Report 4654629-6 (Version None)
Quarter: 2005Q2

REPORT INFORMATION
  Report Type: 
  Country: None (occurrence: None)
  Receive Date: 20050504
  Receipt Date: 20050504
  Transmission Date: 20051028
  Serious: Yes (Other)
  Sender: FDA-Public Use
  Company Number: None

PATIENT
  Age: 46 Year
  Sex: Male

DRUGS (3)
  1. CYMBALTA [Suspect]
     Indication: MAJOR DEPRESSION
     Dosage: CYMBALTA 30 MG DAILY PO
     Route: 048
     Dates: start: 20041229
  2. CYMBALTA [Suspect]
     Indication: PSYCHOTIC DISORDER
     Dosage: CYMBALTA 30 MG DAILY PO
     Route: 048
     Dates: start: 20041229
  3. LITHOBID [Suspect]
     Indication: BORDERLINE PERSONALITY DISORDER
     Dosage: LITHOBID SR 900 MG  BEDT
     Dates: start: 20040228, end: 20050330

REACTIONS (3)
  - DRUG INTERACTION [None]
  - MUSCLE TWITCHING [None]
  - MYOCLONUS [None]
